FAERS Safety Report 11211054 (Version 1)
Quarter: 2015Q2

REPORT INFORMATION
  Report Type: Spontaneous
  Country: US (occurrence: US)
  Receive Date: 20150623
  Receipt Date: 20150623
  Transmission Date: 20150821
  Serious: Yes (Other)
  Sender: FDA-Public Use
  Company Number: US-AMGEN-USASP2015059304

PATIENT
  Age: 33 Year
  Sex: Female

DRUGS (3)
  1. PROLIA [Suspect]
     Active Substance: DENOSUMAB
     Indication: PRODUCT USED FOR UNKNOWN INDICATION
     Dosage: UNK
     Route: 065
  2. DEPO-PROVERA [Suspect]
     Active Substance: MEDROXYPROGESTERONE ACETATE
     Indication: PRODUCT USED FOR UNKNOWN INDICATION
     Route: 065
  3. PREDNISONE. [Suspect]
     Active Substance: PREDNISONE
     Indication: PRODUCT USED FOR UNKNOWN INDICATION
     Route: 065

REACTIONS (17)
  - Ear pain [Unknown]
  - Oropharyngeal pain [Unknown]
  - Unevaluable event [Unknown]
  - Quality of life decreased [Unknown]
  - Pain in jaw [Unknown]
  - Mobility decreased [Unknown]
  - Pharyngeal oedema [Unknown]
  - Myalgia [Unknown]
  - Myocardial infarction [Unknown]
  - Weight decreased [Unknown]
  - Muscular weakness [Unknown]
  - Pulmonary embolism [Unknown]
  - Blood potassium abnormal [Unknown]
  - Thrombosis [Unknown]
  - Heart rate abnormal [Unknown]
  - Swollen tongue [Unknown]
  - Swelling face [Unknown]

NARRATIVE: CASE EVENT DATE: 201409
